FAERS Safety Report 7487878-2 (Version None)
Quarter: 2011Q2

REPORT INFORMATION
  Report Type: 
  Country: None (occurrence: None)
  Receive Date: 20110511
  Receipt Date: 20110429
  Transmission Date: 20111010
  Serious: Yes (Other)
  Sender: FDA-Public Use
  Company Number: AXC-2011-000131

PATIENT
  Age: 69 Year
  Sex: Female

DRUGS (1)
  1. PHOTOFRIN [Suspect]
     Indication: BILE DUCT CANCER

REACTIONS (2)
  - ASTHENIA [None]
  - BLOOD PRESSURE DECREASED [None]
